FAERS Safety Report 8093307-0 (Version None)
Quarter: 2012Q1

REPORT INFORMATION
  Report Type: 
  Country: None (occurrence: None)
  Receive Date: 20120128
  Receipt Date: 20110929
  Transmission Date: 20120608
  Serious: Yes (Hospitalization)
  Sender: FDA-Public Use
  Company Number: US-ABBOTT-11P-163-0841947-00

PATIENT
  Sex: Female
  Weight: 74.002 kg

DRUGS (4)
  1. OSCAL D [Concomitant]
     Indication: PRODUCT USED FOR UNKNOWN INDICATION
  2. HUMIRA [Suspect]
     Indication: RHEUMATOID ARTHRITIS
     Dates: start: 20110101
  3. MULTI-VITAMINS [Concomitant]
     Indication: PRODUCT USED FOR UNKNOWN INDICATION
  4. UNKNOWN BLOOD PRESSURE DRUG [Concomitant]
     Indication: BLOOD PRESSURE ABNORMAL

REACTIONS (5)
  - DEVICE MALFUNCTION [None]
  - INJURY [None]
  - FALL [None]
  - CLAVICLE FRACTURE [None]
  - PELVIC FRACTURE [None]
